FAERS Safety Report 20469755 (Version 2)
Quarter: 2022Q1

REPORT INFORMATION
  Report Type: Spontaneous
  Country: US (occurrence: US)
  Receive Date: 20220214
  Receipt Date: 20220330
  Transmission Date: 20220423
  Serious: No
  Sender: FDA-Public Use
  Company Number: US-MYLANLABS-2022M1002874

PATIENT
  Age: 65 Year
  Sex: Female
  Weight: 54.43 kg

DRUGS (6)
  1. VALSARTAN [Suspect]
     Active Substance: VALSARTAN
     Indication: Hypertension
     Dosage: 160 MILLIGRAM, QD, FOR 1 WEEK
     Dates: start: 20211209
  2. VALSARTAN [Suspect]
     Active Substance: VALSARTAN
     Dosage: 160 MILLIGRAM, BID, 2 TABLETS ONCE A DAY OF VALSARTAN 160 MG
     Dates: start: 20211231, end: 20220103
  3. ATORVASTATIN [Concomitant]
     Active Substance: ATORVASTATIN
     Indication: Blood cholesterol abnormal
     Dosage: 10 MILLIGRAM, QD
     Route: 048
  4. XALATAN [Concomitant]
     Active Substance: LATANOPROST
     Indication: Glaucoma
     Dosage: 0.005 PERCENT, QD, 1 IN EACH EYE
     Route: 047
  5. ALPHAGAN P [Concomitant]
     Active Substance: BRIMONIDINE TARTRATE
     Indication: Glaucoma
     Dosage: 0.2 PERCENT, BID, 1 DROP IN EACH TWICE A DAY
     Route: 047
  6. CALCIUM\VITAMIN D [Concomitant]
     Active Substance: CALCIUM\VITAMIN D
     Dosage: UNK

REACTIONS (2)
  - Blood pressure increased [Recovered/Resolved]
  - Drug ineffective [Recovered/Resolved]

NARRATIVE: CASE EVENT DATE: 20211210
